FAERS Safety Report 17520423 (Version 4)
Quarter: 2020Q2

REPORT INFORMATION
  Report Type: Report from Study
  Country: CO (occurrence: CO)
  Receive Date: 20200310
  Receipt Date: 20200625
  Transmission Date: 20200713
  Serious: Yes (Disabling, Other)
  Sender: FDA-Public Use
  Company Number: CO-BRISTOL-MYERS SQUIBB COMPANY-BMS-2017-101583

PATIENT
  Age: 59 Year
  Sex: Female

DRUGS (4)
  1. ABATACEPT [Suspect]
     Active Substance: ABATACEPT
     Indication: PRODUCT USED FOR UNKNOWN INDICATION
     Dosage: 125 MILLIGRAM, QWK
     Route: 058
     Dates: start: 20160822
  2. NAPROXEN. [Concomitant]
     Active Substance: NAPROXEN
     Indication: PRODUCT USED FOR UNKNOWN INDICATION
     Dosage: 400 MILLIGRAM
     Route: 065
  3. TRIMEBUTINE [Concomitant]
     Active Substance: TRIMEBUTINE
     Indication: PRODUCT USED FOR UNKNOWN INDICATION
     Route: 065
  4. ABATACEPT [Suspect]
     Active Substance: ABATACEPT
     Indication: RHEUMATOID ARTHRITIS
     Dosage: 125 MILLIGRAM, QWK
     Route: 058
     Dates: start: 20160801

REACTIONS (11)
  - Arthralgia [Recovering/Resolving]
  - Drug ineffective [Unknown]
  - Arthritis [Recovering/Resolving]
  - Diarrhoea [Unknown]
  - Feeling abnormal [Unknown]
  - Pain in extremity [Not Recovered/Not Resolved]
  - Colitis [Recovering/Resolving]
  - Glaucoma [Recovering/Resolving]
  - Stress [Recovering/Resolving]
  - Gastrointestinal disorder [Unknown]
  - Hypertension [Recovering/Resolving]

NARRATIVE: CASE EVENT DATE: 20171101
